FAERS Safety Report 12905772 (Version 1)
Quarter: 2016Q4

REPORT INFORMATION
  Report Type: Report from Study
  Country: US (occurrence: US)
  Receive Date: 20161103
  Receipt Date: 20161103
  Transmission Date: 20170207
  Serious: Yes (Other)
  Sender: FDA-Public Use
  Company Number: US-ACCORD-045289

PATIENT
  Age: 6 Decade
  Sex: Male

DRUGS (3)
  1. HYDROCHLOROTHIAZIDE. [Concomitant]
     Active Substance: HYDROCHLOROTHIAZIDE
  2. SIMVASTATIN. [Suspect]
     Active Substance: SIMVASTATIN
     Indication: HYPERLIPIDAEMIA
  3. LISINOPRIL. [Concomitant]
     Active Substance: LISINOPRIL

REACTIONS (6)
  - Irritability [Recovering/Resolving]
  - Drug ineffective [Unknown]
  - Fatigue [Recovering/Resolving]
  - Mood swings [Recovering/Resolving]
  - Personality change [Unknown]
  - Aggression [Recovering/Resolving]
